FAERS Safety Report 21557431 (Version 1)
Quarter: 2022Q4

REPORT INFORMATION
  Report Type: Spontaneous
  Country: US (occurrence: US)
  Receive Date: 20221105
  Receipt Date: 20221105
  Transmission Date: 20230112
  Serious: Yes (Other)
  Sender: FDA-Public Use
  Company Number: US-002147023-NVSC2022US245977

PATIENT
  Sex: Female

DRUGS (2)
  1. VIVELLE-DOT [Suspect]
     Active Substance: ESTRADIOL
     Indication: Product used for unknown indication
     Dosage: 0.05MG, 30 YEARS AGO
     Route: 065
  2. VIVELLE-DOT [Suspect]
     Active Substance: ESTRADIOL
     Dosage: 0.025 MG, EVERY 5 DAYS
     Route: 065

REACTIONS (5)
  - Breast cancer [Unknown]
  - Blood oestrogen decreased [Unknown]
  - Malaise [Unknown]
  - Product packaging quantity issue [Unknown]
  - Product availability issue [Unknown]
